FAERS Safety Report 5238993-5 (Version None)
Quarter: 2007Q1

REPORT INFORMATION
  Report Type: 
  Country: None (occurrence: None)
  Receive Date: 20061208
  Receipt Date: 20050620
  Transmission Date: 20070707
  Serious: Yes (Other)
  Sender: FDA-Public Use
  Company Number: 2005UW09431

PATIENT
  Age: 62 Year
  Sex: Female
  Weight: 58.967 kg

DRUGS (6)
  1. CRESTOR [Suspect]
     Indication: BLOOD CHOLESTEROL INCREASED
     Dosage: 5 MG DAILY PO
     Route: 048
     Dates: start: 20050501
  2. PROZAC [Concomitant]
  3. LIBRAX [Concomitant]
  4. SEROQUEL [Concomitant]
  5. ADVAIR DISKUS 100/50 [Concomitant]
  6. NASONEX [Concomitant]

REACTIONS (2)
  - DYSGEUSIA [None]
  - MYALGIA [None]
